FAERS Safety Report 8356411-5 (Version None)
Quarter: 2012Q2

REPORT INFORMATION
  Report Type: 
  Country: None (occurrence: None)
  Receive Date: 20120514
  Receipt Date: 20120504
  Transmission Date: 20120825
  Serious: Yes (Hospitalization, Other)
  Sender: FDA-Public Use
  Company Number: CA-ABBOTT-12P-028-0932999-00

PATIENT
  Sex: Female

DRUGS (1)
  1. HUMIRA [Suspect]
     Indication: CROHN'S DISEASE
     Route: 058
     Dates: start: 20120306

REACTIONS (7)
  - APPENDICECTOMY [None]
  - CAECECTOMY [None]
  - FLANK PAIN [None]
  - NEPHROLITHIASIS [None]
  - DISCOMFORT [None]
  - SMALL INTESTINAL RESECTION [None]
  - BLOOD URINE PRESENT [None]
